FAERS Safety Report 25646551 (Version 2)
Quarter: 2025Q3

REPORT INFORMATION
  Report Type: Spontaneous
  Country: US (occurrence: US)
  Receive Date: 20250805
  Receipt Date: 20250811
  Transmission Date: 20251021
  Serious: Yes (Death, Life-Threatening, Hospitalization, Other)
  Sender: MADRIGAL PHARMACEUTICALS
  Company Number: US-MADRIGAL PHARMACEUTICALS, INC-2025REZ8942

PATIENT

DRUGS (17)
  1. REZDIFFRA [Suspect]
     Active Substance: RESMETIROM
     Indication: Metabolic dysfunction-associated steatohepatitis
     Route: 065
     Dates: start: 202503
  2. REZDIFFRA [Suspect]
     Active Substance: RESMETIROM
     Indication: Hepatic cirrhosis
  3. OMEPRAZOLE [Suspect]
     Active Substance: OMEPRAZOLE
     Dates: start: 202505
  4. MOUNJARO [Concomitant]
     Active Substance: TIRZEPATIDE
     Indication: Weight decreased
     Dates: start: 202504
  5. MOUNJARO [Concomitant]
     Active Substance: TIRZEPATIDE
     Route: 065
     Dates: start: 202408, end: 202412
  6. MOUNJARO [Concomitant]
     Active Substance: TIRZEPATIDE
     Dates: start: 2024
  7. MOUNJARO [Concomitant]
     Active Substance: TIRZEPATIDE
     Dates: start: 202502, end: 202504
  8. ROSUVASTATIN [Concomitant]
     Active Substance: ROSUVASTATIN
     Dates: start: 202406
  9. LEVOTHYROXINE [Concomitant]
     Active Substance: LEVOTHYROXINE
     Dates: start: 202409
  10. CARVEDILOL [Concomitant]
     Active Substance: CARVEDILOL
     Dates: start: 202506
  11. CARVEDILOL [Concomitant]
     Active Substance: CARVEDILOL
     Dates: start: 202503, end: 202506
  12. CARVEDILOL [Concomitant]
     Active Substance: CARVEDILOL
     Dates: start: 202405
  13. FOLIC ACID [Concomitant]
     Active Substance: FOLIC ACID
  14. COENZYME Q10 [Concomitant]
     Active Substance: DIETARY SUPPLEMENT\UBIDECARENONE
  15. VITAMINS [Concomitant]
     Active Substance: VITAMINS
  16. CALCIUM\MAGNESIUM\VITAMIN D\ZINC [Concomitant]
     Active Substance: CALCIUM\MAGNESIUM\VITAMIN D\ZINC
  17. MIRALAX [Concomitant]
     Active Substance: POLYETHYLENE GLYCOL 3350

REACTIONS (3)
  - Acute on chronic liver failure [Fatal]
  - Multiple organ dysfunction syndrome [Fatal]
  - Product use in unapproved indication [Unknown]

NARRATIVE: CASE EVENT DATE: 20250301
